FAERS Safety Report 17534182 (Version 2)
Quarter: 2020Q4

REPORT INFORMATION
  Report Type: Report from Study
  Country: CA (occurrence: CA)
  Receive Date: 20200312
  Receipt Date: 20201019
  Transmission Date: 20210113
  Serious: Yes (Other)
  Sender: FDA-Public Use
  Company Number: CA-ASTRAZENECA-2020SE32597

PATIENT
  Sex: Female

DRUGS (9)
  1. VENTOLIN [Concomitant]
     Active Substance: ALBUTEROL SULFATE
  2. MONTELUKAST [Concomitant]
     Active Substance: MONTELUKAST SODIUM
  3. CHLORTHALIDONE. [Concomitant]
     Active Substance: CHLORTHALIDONE
  4. FASENRA [Suspect]
     Active Substance: BENRALIZUMAB
     Indication: ASTHMA
     Dosage: 30.0MG UNKNOWN
     Route: 058
     Dates: start: 20190123, end: 20191227
  5. PREDNISONE. [Concomitant]
     Active Substance: PREDNISONE
  6. SALBUTAMOL [Concomitant]
     Active Substance: ALBUTEROL
  7. PAROXETINE. [Concomitant]
     Active Substance: PAROXETINE
  8. SPIRIVA [Concomitant]
     Active Substance: TIOTROPIUM BROMIDE MONOHYDRATE
  9. BISOPROLOL [Concomitant]
     Active Substance: BISOPROLOL

REACTIONS (21)
  - Suicidal ideation [Unknown]
  - Malaise [Unknown]
  - General physical health deterioration [Unknown]
  - Insomnia [Unknown]
  - Tremor [Unknown]
  - Blood potassium decreased [Unknown]
  - Hyperhidrosis [Unknown]
  - Hypophagia [Unknown]
  - Dry mouth [Unknown]
  - Mental impairment [Unknown]
  - Cognitive disorder [Unknown]
  - Depression [Unknown]
  - Mental disorder [Unknown]
  - Crying [Unknown]
  - Thinking abnormal [Unknown]
  - Anal incontinence [Unknown]
  - Arthralgia [Unknown]
  - Weight increased [Unknown]
  - Eye pain [Unknown]
  - Confusional state [Unknown]
  - Pain in extremity [Unknown]
